FAERS Safety Report 9428637 (Version 1)
Quarter: 2013Q3

REPORT INFORMATION
  Report Type: Report from Study
  Country: US (occurrence: US)
  Receive Date: 20130730
  Receipt Date: 20130730
  Transmission Date: 20140515
  Serious: No
  Sender: FDA-Public Use
  Company Number: US-ABBOTT-12P-163-1022043-00

PATIENT
  Sex: Male
  Weight: 99.88 kg

DRUGS (8)
  1. NIASPAN (COATED) [Suspect]
     Indication: HIGH DENSITY LIPOPROTEIN DECREASED
     Dosage: TAKING IT AROUND 3 OR 4AM
  2. NIASPAN (COATED) [Suspect]
     Indication: LOW DENSITY LIPOPROTEIN INCREASED
  3. NAPROXEN [Suspect]
     Indication: PRODUCT USED FOR UNKNOWN INDICATION
     Dosage: CUTTING THE DOSAGE IN HALF
  4. LIPITOR [Suspect]
     Indication: PRODUCT USED FOR UNKNOWN INDICATION
  5. ASPIRIN [Concomitant]
     Indication: PRODUCT USED FOR UNKNOWN INDICATION
     Dosage: LOW DOSE
  6. SIMVASTATIN [Concomitant]
     Indication: PRODUCT USED FOR UNKNOWN INDICATION
  7. LISINOPRIL [Concomitant]
     Indication: PRODUCT USED FOR UNKNOWN INDICATION
  8. ZOLOFT [Concomitant]
     Indication: PRODUCT USED FOR UNKNOWN INDICATION

REACTIONS (14)
  - Somnolence [Unknown]
  - Flushing [Unknown]
  - Pruritus [Unknown]
  - Erythema [Unknown]
  - Feeling hot [Unknown]
  - Palpitations [Recovered/Resolved]
  - Myalgia [Recovered/Resolved]
  - Muscular weakness [Not Recovered/Not Resolved]
  - Muscle rupture [Not Recovered/Not Resolved]
  - Feeling abnormal [Not Recovered/Not Resolved]
  - Headache [Not Recovered/Not Resolved]
  - Dysuria [Recovered/Resolved]
  - Prostatomegaly [Unknown]
  - Renal disorder [Unknown]
